FAERS Safety Report 6857387-X (Version None)
Quarter: 2010Q3

REPORT INFORMATION
  Report Type: 
  Country: None (occurrence: None)
  Receive Date: 20100719
  Receipt Date: 20100707
  Transmission Date: 20110219
  Serious: Yes (Hospitalization)
  Sender: FDA-Public Use
  Company Number: CHPA2010VE11385

PATIENT
  Sex: Female

DRUGS (1)
  1. THERAFLU THIN STRIPS-LONG ACTING COUGH (NCH) [Suspect]
     Indication: COUGH
     Dosage: 1 DOSE, ONCE/SINGLE
     Route: 048
     Dates: start: 20100401, end: 20100401

REACTIONS (2)
  - COUGH [None]
  - DYSPNOEA [None]
